FAERS Safety Report 12417418 (Version 1)
Quarter: 2016Q2

REPORT INFORMATION
  Report Type: Report from Study
  Country: CA (occurrence: CA)
  Receive Date: 20160530
  Receipt Date: 20160530
  Transmission Date: 20160815
  Serious: Yes (Other)
  Sender: FDA-Public Use
  Company Number: CA-JNJFOC-20140307440

PATIENT
  Age: 62 Year
  Sex: Male
  Weight: 64 kg

DRUGS (4)
  1. PERCOCET [Concomitant]
     Active Substance: ACETAMINOPHEN\OXYCODONE HYDROCHLORIDE
     Route: 065
  2. AZATHIOPRINE. [Concomitant]
     Active Substance: AZATHIOPRINE
     Route: 065
  3. ZOPICLONE [Concomitant]
     Active Substance: ZOPICLONE
     Route: 065
  4. REMICADE [Suspect]
     Active Substance: INFLIXIMAB
     Indication: CROHN^S DISEASE
     Route: 042
     Dates: start: 20120514

REACTIONS (4)
  - Nasopharyngitis [Recovered/Resolved]
  - Cough [Recovered/Resolved]
  - Rhinorrhoea [Recovered/Resolved]
  - Pulmonary congestion [Unknown]

NARRATIVE: CASE EVENT DATE: 201403
